FAERS Safety Report 16480315 (Version 11)
Quarter: 2020Q4

REPORT INFORMATION
  Report Type: Spontaneous
  Country: US (occurrence: US)
  Receive Date: 20190626
  Receipt Date: 20201218
  Transmission Date: 20210113
  Serious: Yes (Hospitalization, Other)
  Sender: FDA-Public Use
  Company Number: US-PFIZER INC-2019271151

PATIENT
  Age: 64 Year
  Sex: Male
  Weight: 226 kg

DRUGS (5)
  1. LYRICA [Suspect]
     Active Substance: PREGABALIN
     Dosage: 50 MG, 2X/DAY (50 MG IN THE MORNING AND 50 MG IN THE EVENING)
  2. LYRICA [Suspect]
     Active Substance: PREGABALIN
     Dosage: 100 MG, 2X/DAY
  3. LYRICA [Suspect]
     Active Substance: PREGABALIN
     Dosage: 1 DF, WEEKLY (ONE PILL FOR ONE WEEK)
  4. LYRICA [Suspect]
     Active Substance: PREGABALIN
     Indication: FIBROMYALGIA
     Dosage: 100 MG, 1X/DAY (IN THE EVENING)
  5. LYRICA [Suspect]
     Active Substance: PREGABALIN
     Dosage: UNK, ALTERNATE DAY (ONE EVERY OTHER DAY)

REACTIONS (17)
  - Insomnia [Unknown]
  - Sensitivity to weather change [Unknown]
  - Vomiting [Unknown]
  - Suicidal behaviour [Unknown]
  - Malaise [Unknown]
  - Hyperhidrosis [Unknown]
  - Chills [Unknown]
  - Constipation [Unknown]
  - Abdominal pain upper [Unknown]
  - Feeling abnormal [Unknown]
  - Pain [Not Recovered/Not Resolved]
  - Withdrawal syndrome [Not Recovered/Not Resolved]
  - Intentional product use issue [Unknown]
  - Headache [Unknown]
  - Condition aggravated [Unknown]
  - Drug ineffective [Unknown]
  - Nausea [Unknown]
